FAERS Safety Report 8181434-9 (Version None)
Quarter: 2012Q1

REPORT INFORMATION
  Report Type: 
  Country: None (occurrence: None)
  Receive Date: 20120302
  Receipt Date: 20120220
  Transmission Date: 20120608
  Serious: Yes (Death)
  Sender: FDA-Public Use
  Company Number: GR-FRI-1000028309

PATIENT
  Sex: Male
  Weight: 57 kg

DRUGS (8)
  1. FLUTICASONE PROPIONATE/SALMETEROL [Concomitant]
     Indication: CHRONIC OBSTRUCTIVE PULMONARY DISEASE
     Route: 055
  2. FLUTICASONE PROPIONATE/SALMETEROL [Concomitant]
     Indication: PNEUMONIA
  3. LONARID [Concomitant]
     Indication: PAIN
  4. ROFLUMILAST [Suspect]
     Route: 048
     Dates: start: 20111101, end: 20111201
  5. DEPON [Concomitant]
     Indication: PAIN
  6. ROFLUMILAST [Suspect]
     Indication: CHRONIC OBSTRUCTIVE PULMONARY DISEASE
     Route: 048
     Dates: start: 20110901, end: 20110901
  7. SPIRIVA [Concomitant]
     Indication: CHRONIC OBSTRUCTIVE PULMONARY DISEASE
     Route: 055
  8. OXYGEN [Concomitant]
     Dates: start: 20110401

REACTIONS (5)
  - CHRONIC OBSTRUCTIVE PULMONARY DISEASE [None]
  - INFARCTION [None]
  - INFECTION [None]
  - PLEURITIC PAIN [None]
  - CARDIAC ARREST [None]
